FAERS Safety Report 15309031 (Version 1)
Quarter: 2018Q3

REPORT INFORMATION
  Report Type: Spontaneous
  Country: US (occurrence: US)
  Receive Date: 20180811
  Receipt Date: 20180811
  Transmission Date: 20181010
  Serious: Yes (Disabling)
  Sender: FDA-Public Use
  Company Number: None

PATIENT
  Age: 61 Year
  Sex: Female
  Weight: 90 kg

DRUGS (13)
  1. FLUOXETINE [Concomitant]
     Active Substance: FLUOXETINE HYDROCHLORIDE
  2. VITAMIN B [Concomitant]
     Active Substance: VITAMIN B
  3. BIOTIN [Concomitant]
     Active Substance: BIOTIN
  4. LISINOPRIL. [Concomitant]
     Active Substance: LISINOPRIL
  5. SELENIUM [Concomitant]
     Active Substance: SELENIUM
  6. MAGNESIUM [Concomitant]
     Active Substance: MAGNESIUM
  7. VITAMIN D [Concomitant]
     Active Substance: CHOLECALCIFEROL
  8. ADRENAL COMPLEX [Concomitant]
  9. GINGKO [Concomitant]
     Active Substance: GINKGO
  10. VITAMIN C [Concomitant]
     Active Substance: ASCORBIC ACID
  11. NATURE?THROID [Suspect]
     Active Substance: THYROID, PORCINE
     Indication: HYPOTHYROIDISM
     Dosage: ?          QUANTITY:1 TABLET(S);?
     Route: 048
     Dates: start: 20180619, end: 20180806
  12. CHONDROITIN [Concomitant]
     Active Substance: CHONDROITIN
  13. ASHWAGHANDA [Concomitant]

REACTIONS (7)
  - Decreased appetite [None]
  - Constipation [None]
  - Product substitution issue [None]
  - Drug ineffective [None]
  - Fatigue [None]
  - Feeling cold [None]
  - Apathy [None]

NARRATIVE: CASE EVENT DATE: 20180806
